FAERS Safety Report 6431710-2 (Version None)
Quarter: 2009Q4

REPORT INFORMATION
  Report Type: 
  Country: None (occurrence: None)
  Receive Date: 20091103
  Receipt Date: 20091019
  Transmission Date: 20100525
  Serious: Yes (Hospitalization)
  Sender: FDA-Public Use
  Company Number: 02100-JPN-05-0339

PATIENT
  Age: 65 Year
  Sex: Male
  Weight: 64 kg

DRUGS (1)
  1. PLETAL [Suspect]
     Indication: CEREBRAL INFARCTION
     Dosage: 81 MG, QD
     Route: 048
     Dates: start: 20050615, end: 20050717

REACTIONS (8)
  - COLD SWEAT [None]
  - DIZZINESS [None]
  - FAECES DISCOLOURED [None]
  - GASTRODUODENAL ULCER [None]
  - HAEMOGLOBIN DECREASED [None]
  - HEADACHE [None]
  - RESTLESSNESS [None]
  - ULCER HAEMORRHAGE [None]
